FAERS Safety Report 4590170-7 (Version None)
Quarter: 2005Q1

REPORT INFORMATION
  Report Type: 
  Country: None (occurrence: None)
  Receive Date: 20050224
  Receipt Date: 20050214
  Transmission Date: 20050727
  Serious: Yes (Other)
  Sender: FDA-Public Use
  Company Number: 200510506JP

PATIENT
  Sex: Female

DRUGS (1)
  1. ARAVA [Suspect]
     Route: 048

REACTIONS (3)
  - BLISTER [None]
  - TONGUE DISCOLOURATION [None]
  - TONGUE NEOPLASM MALIGNANT STAGE UNSPECIFIED [None]
